FAERS Safety Report 15742539 (Version 3)
Quarter: 2020Q4

REPORT INFORMATION
  Report Type: Spontaneous
  Country: US (occurrence: US)
  Receive Date: 20181219
  Receipt Date: 20201202
  Transmission Date: 20210113
  Serious: Yes (Other)
  Sender: FDA-Public Use
  Company Number: PHEH2018US053719

PATIENT
  Sex: Female

DRUGS (1)
  1. TASIGNA [Suspect]
     Active Substance: NILOTINIB
     Indication: CHRONIC MYELOID LEUKAEMIA
     Dosage: 01 DF, BID
     Route: 048
     Dates: start: 201604, end: 201709

REACTIONS (18)
  - Cardiovascular disorder [Unknown]
  - Peripheral arterial occlusive disease [Unknown]
  - Carotid artery stenosis [Unknown]
  - Anaemia [Unknown]
  - Thrombosis [Unknown]
  - Ischaemic stroke [Unknown]
  - Coronary artery disease [Unknown]
  - Transient ischaemic attack [Unknown]
  - Oral candidiasis [Unknown]
  - Anxiety [Unknown]
  - Cerebrovascular accident [Unknown]
  - Obesity [Unknown]
  - Emotional distress [Unknown]
  - Hyperglycaemia [Unknown]
  - Myocardial infarction [Unknown]
  - Dyslipidaemia [Unknown]
  - Hepatic steatosis [Unknown]
  - Pain [Unknown]
